FAERS Safety Report 6039103-7 (Version None)
Quarter: 2009Q1

REPORT INFORMATION
  Report Type: 
  Country: None (occurrence: None)
  Receive Date: 20090115
  Receipt Date: 20090109
  Transmission Date: 20090719
  Serious: Yes (Hospitalization)
  Sender: FDA-Public Use
  Company Number: ES-SANOFI-SYNTHELABO-F01200900026

PATIENT
  Sex: Male
  Weight: 42 kg

DRUGS (3)
  1. CAPECITABINE [Suspect]
     Route: 048
     Dates: start: 20080904
  2. DOCETAXEL [Suspect]
     Route: 042
     Dates: start: 20090102, end: 20090102
  3. OXALIPLATIN [Suspect]
     Indication: GASTRIC CANCER
     Route: 042
     Dates: start: 20090102, end: 20090102

REACTIONS (1)
  - PERFORMANCE STATUS DECREASED [None]
